FAERS Safety Report 6244011-2 (Version None)
Quarter: 2009Q2

REPORT INFORMATION
  Report Type: 
  Country: None (occurrence: None)
  Receive Date: 20090623
  Receipt Date: 20090609
  Transmission Date: 20091009
  Serious: Yes (Other)
  Sender: FDA-Public Use
  Company Number: 2009-02298

PATIENT
  Sex: Male

DRUGS (5)
  1. VELCADE [Suspect]
     Indication: MULTIPLE MYELOMA
     Dosage: 25 MG, INTRAVENOUS
     Route: 042
     Dates: start: 20081024
  2. BONJELA (GLYCEROL, ETHANOL, CHOLINE SALICYLATE, CETALKONIUM CHLORIDE, [Concomitant]
  3. CO-DYDRAMOL (PARACETAMOL, DIHYDROCODEINE BITARTRATE) [Concomitant]
  4. DEXAMETHASONE [Concomitant]
  5. WARFARIN SODIUM [Concomitant]

REACTIONS (1)
  - DRUG HYPERSENSITIVITY [None]
